FAERS Safety Report 21695586 (Version 1)
Quarter: 2022Q4

REPORT INFORMATION
  Report Type: Report from Study
  Country: US (occurrence: US)
  Receive Date: 20221207
  Receipt Date: 20221207
  Transmission Date: 20230113
  Serious: Yes (Other)
  Sender: FDA-Public Use
  Company Number: US-ABBVIE-4226667

PATIENT
  Sex: Female

DRUGS (1)
  1. HUMIRA [Suspect]
     Active Substance: ADALIMUMAB
     Indication: Psoriatic arthropathy
     Dosage: CF?FORM STRENGTH 40 MG
     Route: 058

REACTIONS (4)
  - Cardiac failure [Unknown]
  - Malaise [Unknown]
  - Impaired healing [Unknown]
  - Skin wound [Unknown]
